FAERS Safety Report 5009594-9 (Version None)
Quarter: 2006Q2

REPORT INFORMATION
  Report Type: 
  Country: None (occurrence: None)
  Receive Date: 20060524
  Receipt Date: 20060515
  Transmission Date: 20061013
  Serious: Yes (Other)
  Sender: FDA-Public Use
  Company Number: 2006UW09510

PATIENT
  Age: 42 Year
  Sex: Female

DRUGS (3)
  1. SEROQUEL [Suspect]
     Indication: DEPRESSION
     Route: 048
  2. SEROQUEL [Suspect]
     Route: 048
     Dates: start: 20060401
  3. WELLBUTRIN [Concomitant]

REACTIONS (3)
  - DYSPNOEA [None]
  - FEELING OF DESPAIR [None]
  - SUICIDAL IDEATION [None]
